FAERS Safety Report 11795397 (Version 1)
Quarter: 2015Q4

REPORT INFORMATION
  Report Type: Spontaneous
  Country: FR (occurrence: FR)
  Receive Date: 20151202
  Receipt Date: 20151202
  Transmission Date: 20160305
  Serious: Yes (Other)
  Sender: FDA-Public Use
  Company Number: FR-MYLANLABS-2015M1042773

PATIENT

DRUGS (2)
  1. FONDAPARINUX [Suspect]
     Active Substance: FONDAPARINUX
     Indication: PERIPHERAL VENOUS DISEASE
     Dosage: UNK
     Dates: start: 201510
  2. FONDAPARINUX [Suspect]
     Active Substance: FONDAPARINUX
     Indication: OFF LABEL USE

REACTIONS (2)
  - Off label use [Unknown]
  - Breast haemorrhage [Not Recovered/Not Resolved]

NARRATIVE: CASE EVENT DATE: 20151018
